FAERS Safety Report 4442789-1 (Version None)
Quarter: 2004Q3

REPORT INFORMATION
  Report Type: 
  Country: None (occurrence: None)
  Receive Date: 20040903
  Receipt Date: 20040610
  Transmission Date: 20050211
  Serious: Yes (Other)
  Sender: FDA-Public Use
  Company Number: 2004UW12051

PATIENT
  Age: 67 Year
  Sex: Female

DRUGS (5)
  1. CRESTOR [Suspect]
     Indication: BLOOD CHOLESTEROL INCREASED
     Dosage: 20 MG PO
     Route: 048
  2. AVAPRO [Concomitant]
  3. ASPIRIN [Concomitant]
  4. METOPROLOL [Concomitant]
  5. NORVASC [Concomitant]

REACTIONS (2)
  - EYE SWELLING [None]
  - NAUSEA [None]
